FAERS Safety Report 9855595 (Version 1)
Quarter: 2014Q1

REPORT INFORMATION
  Report Type: Spontaneous
  Country: US (occurrence: None)
  Receive Date: 20140129
  Receipt Date: 20140129
  Transmission Date: 20141002
  Serious: Yes (Death, Hospitalization)
  Sender: FDA-Public Use
  Company Number: None

PATIENT
  Age: 57 Year
  Sex: Female
  Weight: 68.5 kg

DRUGS (6)
  1. CYTARABINE [Suspect]
  2. IDARUBICIN [Suspect]
  3. ATIVAN [Concomitant]
  4. MORPHINE [Concomitant]
  5. TYLENOL [Concomitant]
  6. ZOFRAN [Concomitant]

REACTIONS (9)
  - Pyrexia [None]
  - Tachycardia [None]
  - Diarrhoea [None]
  - Hypotension [None]
  - Hypothermia [None]
  - Neutropenia [None]
  - Pulmonary oedema [None]
  - Mental status changes [None]
  - General physical health deterioration [None]
